FAERS Safety Report 8684693 (Version 4)
Quarter: 2012Q4

REPORT INFORMATION
  Report Type: 
  Country: US (occurrence: US)
  Receive Date: 20120726
  Receipt Date: 20120928
  Transmission Date: 20130627
  Serious: No
  Sender: FDA-Public Use
  Company Number: US-ASTRAZENECA-2011SE23243

PATIENT
  Age: 62 Year
  Sex: Female
  Weight: 49.9 kg

DRUGS (13)
  1. SEROQUEL XR [Suspect]
     Indication: BIPOLAR DISORDER
     Route: 048
  2. SEROQUEL XR [Suspect]
     Indication: BIPOLAR DISORDER
     Route: 048
     Dates: start: 2008, end: 20110417
  3. SEROQUEL XR [Suspect]
     Indication: BIPOLAR DISORDER
     Route: 048
     Dates: start: 2004, end: 20120906
  4. VALIUM [Suspect]
     Indication: MIGRAINE
     Dosage: NOT MORE THAN 4 TAB, QD
     Route: 065
  5. LAMICTAL [Concomitant]
     Indication: BIPOLAR DISORDER
     Dates: start: 2004
  6. PAXIL [Concomitant]
     Indication: BIPOLAR I DISORDER
     Dates: start: 2002
  7. FLURAZEPAM HCL [Concomitant]
  8. SLEEPING PILL [Concomitant]
  9. BUTALBITAL/ACETAMINOPHEN [Concomitant]
     Indication: HEADACHE
  10. BUTALBITAL/ACETAMINOPHEN [Concomitant]
     Indication: OSTEOPOROSIS
  11. BUTALBITAL/ACETAMINOPHEN [Concomitant]
     Indication: ARTHRITIS
  12. HALCION [Concomitant]
     Indication: SLEEP DISORDER
     Dosage: UNKNOWN
     Dates: start: 20120906
  13. ALENDRONATE SODIUM [Concomitant]
     Indication: OSTEOPOROSIS
     Dates: start: 201208

REACTIONS (32)
  - Insomnia [Unknown]
  - Bipolar disorder [Unknown]
  - Thinking abnormal [Unknown]
  - Feeling jittery [Unknown]
  - Bradyphrenia [Unknown]
  - Decreased appetite [Unknown]
  - Fall [Unknown]
  - Rib fracture [Unknown]
  - Delusion [Unknown]
  - Gait disturbance [Unknown]
  - Migraine [Unknown]
  - Diarrhoea [Not Recovered/Not Resolved]
  - Renal disorder [Not Recovered/Not Resolved]
  - Kyphosis [Unknown]
  - Adverse event [Unknown]
  - Dehydration [Not Recovered/Not Resolved]
  - Disorientation [Unknown]
  - Dementia [Unknown]
  - Condition aggravated [Unknown]
  - Feeling abnormal [Unknown]
  - Abdominal pain upper [Unknown]
  - Nausea [Unknown]
  - Depression [Unknown]
  - Malaise [Unknown]
  - Stress [Unknown]
  - Nightmare [Unknown]
  - Tremor [Unknown]
  - Drug withdrawal syndrome [Unknown]
  - Asthenia [Unknown]
  - Somnolence [Recovered/Resolved]
  - Vomiting [Not Recovered/Not Resolved]
  - Drug dose omission [Unknown]
